FAERS Safety Report 9018583 (Version 1)
Quarter: 2013Q1

REPORT INFORMATION
  Report Type: Spontaneous
  Country: US (occurrence: US)
  Receive Date: 20130118
  Receipt Date: 20130118
  Transmission Date: 20140127
  Serious: No
  Sender: FDA-Public Use
  Company Number: US-PFIZER INC-2013020816

PATIENT
  Age: 66 Year
  Sex: Male
  Weight: 118 kg

DRUGS (7)
  1. CELEBREX [Suspect]
     Indication: ARTHRALGIA
     Dosage: 200 MG, 2X/DAY
     Route: 048
     Dates: end: 201301
  2. METFORMIN [Concomitant]
     Dosage: 1000 MG, 2X/DAY
  3. GLIMEPIRIDE [Concomitant]
     Dosage: 4 MG, 2X/DAY
  4. PIOGLITAZONE [Concomitant]
     Dosage: 30 MG, 1X/DAY
  5. FLUOXETINE [Concomitant]
     Dosage: 40 MG, 1X/DAY
  6. CO-DIOVAN [Concomitant]
     Dosage: UNK, 1X/DAY
  7. LORAZEPAM [Concomitant]
     Dosage: 0.5 MG, AS NEEDED

REACTIONS (1)
  - Pain [Unknown]
